FAERS Safety Report 10053515 (Version 12)
Quarter: 2019Q4

REPORT INFORMATION
  Report Type: Spontaneous
  Country: US (occurrence: US)
  Receive Date: 20140402
  Receipt Date: 20191016
  Transmission Date: 20200122
  Serious: Yes (Other)
  Sender: FDA-Public Use
  Company Number: US-PFIZER INC-2014090886

PATIENT
  Age: 64 Year
  Sex: Male

DRUGS (5)
  1. LEVOTHYROXINE. [Concomitant]
     Active Substance: LEVOTHYROXINE
     Indication: THYROID DISORDER
     Dosage: 112 UG, DAILY
  2. PREDNISONE. [Concomitant]
     Active Substance: PREDNISONE
     Indication: RHEUMATOID ARTHRITIS
     Dosage: 5 MG, DAILY
  3. PLAQUENIL [Suspect]
     Active Substance: HYDROXYCHLOROQUINE SULFATE
     Indication: RHEUMATOID ARTHRITIS
     Dosage: 200 MG, 2X/DAY
     Dates: start: 199501
  4. XELJANZ [Suspect]
     Active Substance: TOFACITINIB CITRATE
     Indication: RHEUMATOID ARTHRITIS
     Dosage: 5 MG, 2X/DAY
     Route: 048
     Dates: start: 201307
  5. FOLIC ACID. [Concomitant]
     Active Substance: FOLIC ACID
     Indication: RHEUMATOID ARTHRITIS
     Dosage: 1 MG, DAILY

REACTIONS (7)
  - Condition aggravated [Not Recovered/Not Resolved]
  - Pneumonia [Recovered/Resolved]
  - Rheumatoid arthritis [Not Recovered/Not Resolved]
  - Upper respiratory tract infection [Recovered/Resolved]
  - Asthma [Recovered/Resolved]
  - Nasopharyngitis [Recovered/Resolved]
  - Pyrexia [Recovered/Resolved]

NARRATIVE: CASE EVENT DATE: 201310
